FAERS Safety Report 12067868 (Version 1)
Quarter: 2016Q1

REPORT INFORMATION
  Report Type: Spontaneous
  Country: US (occurrence: US)
  Receive Date: 20160211
  Receipt Date: 20160211
  Transmission Date: 20160526
  Serious: No
  Sender: FDA-Public Use
  Company Number: US-SMITH AND NEPHEW, INC-2015SMT00112

PATIENT
  Sex: Female
  Weight: 77.98 kg

DRUGS (4)
  1. WARFARIN [Suspect]
     Active Substance: WARFARIN
     Dosage: 3 MG, UNK
     Dates: start: 2015
  2. WARFARIN [Suspect]
     Active Substance: WARFARIN
     Dosage: 4 MG, EVERY 48 HOURS
     Dates: start: 2015
  3. REGRANEX [Suspect]
     Active Substance: BECAPLERMIN
     Indication: WOUND
     Dosage: UNK UNK, 1X/WEEK
     Route: 061
     Dates: start: 2015, end: 201505
  4. REGRANEX [Suspect]
     Active Substance: BECAPLERMIN
     Dosage: UNK
     Route: 061
     Dates: start: 201505

REACTIONS (9)
  - Off label use [Not Recovered/Not Resolved]
  - Skin ulcer [Unknown]
  - Inappropriate schedule of drug administration [Not Recovered/Not Resolved]
  - Urticaria [Unknown]
  - Scab [Unknown]
  - Peripheral swelling [Unknown]
  - Burning sensation [Unknown]
  - Insomnia [Unknown]
  - Pruritus [Unknown]

NARRATIVE: CASE EVENT DATE: 2015
